FAERS Safety Report 10175843 (Version 1)
Quarter: 2014Q2

REPORT INFORMATION
  Report Type: Other
  Country: US (occurrence: US)
  Receive Date: 20140516
  Receipt Date: 20140516
  Transmission Date: 20141212
  Serious: Yes (Death)
  Sender: FDA-Public Use
  Company Number: US-SHIRE-US201402140

PATIENT
  Age: 75 Year
  Sex: Female

DRUGS (2)
  1. VPRIV [Suspect]
     Indication: GAUCHER^S DISEASE
     Dosage: 3600 IU (9 VIALS), OTHER (BIWEEKLY)
     Route: 042
     Dates: start: 20111219
  2. OXYGEN [Concomitant]
     Indication: PRODUCT USED FOR UNKNOWN INDICATION
     Dosage: UNK, UNKNOWN
     Route: 065

REACTIONS (1)
  - Death [Fatal]
